FAERS Safety Report 22372030 (Version 1)
Quarter: 2023Q2

REPORT INFORMATION
  Report Type: Spontaneous
  Country: FR (occurrence: FR)
  Receive Date: 20230526
  Receipt Date: 20230526
  Transmission Date: 20230721
  Serious: Yes (Other)
  Sender: FDA-Public Use
  Company Number: FR-002147023-NVSC2023FR111707

PATIENT

DRUGS (3)
  1. RUXOLITINIB [Suspect]
     Active Substance: RUXOLITINIB
     Indication: Myeloproliferative neoplasm
     Dosage: GREATER THAN 10 MG, BID
     Route: 065
  2. AZACITIDINE [Suspect]
     Active Substance: AZACITIDINE
     Indication: Myeloproliferative neoplasm
     Dosage: 50-75 MG/M2, ON DAYS 1 THROUGH 7 EVERY 28-DAY CYCLE
     Route: 065
  3. VENETOCLAX [Suspect]
     Active Substance: VENETOCLAX
     Indication: Myeloproliferative neoplasm
     Dosage: 200-400 MG, QD, ON DAYS 1 THROUGH 14 AT 28
     Route: 048

REACTIONS (3)
  - Malignant neoplasm progression [Unknown]
  - Myeloproliferative neoplasm [Unknown]
  - Transformation to acute myeloid leukaemia [Unknown]
